FAERS Safety Report 8896278 (Version 1)
Quarter: 2012Q4

REPORT INFORMATION
  Report Type: Spontaneous
  Country: CA (occurrence: None)
  Receive Date: 20121106
  Receipt Date: 20121106
  Transmission Date: 20130627
  Serious: No
  Sender: FDA-Public Use
  Company Number: None

PATIENT
  Age: 27 Year
  Sex: Male
  Weight: 68.04 kg

DRUGS (2)
  1. DOXYCYCLINE [Suspect]
     Indication: ACNE
     Dosage: 2    2   po
     Route: 048
     Dates: start: 20120103, end: 20121007
  2. DOXYCYCLINE [Suspect]
     Indication: ECZEMA
     Dosage: 2    2   po
     Route: 048
     Dates: start: 20120103, end: 20121007

REACTIONS (7)
  - Cow^s milk intolerance [None]
  - Photosensitivity reaction [None]
  - Food allergy [None]
  - Sensitivity to weather change [None]
  - Blister [None]
  - Pain [None]
  - Facial pain [None]
